FAERS Safety Report 4432410-0 (Version None)
Quarter: 2004Q3

REPORT INFORMATION
  Report Type: 
  Country: None (occurrence: None)
  Receive Date: 20040825
  Receipt Date: 20040814
  Transmission Date: 20050211
  Serious: Yes (Life-Threatening, Hospitalization, Disabling, Other)
  Sender: FDA-Public Use
  Company Number: GB-GLAXOSMITHKLINE-B0342509A

PATIENT
  Age: 55 Year
  Sex: Male
  Weight: 70 kg

DRUGS (13)
  1. ZOVIRAX [Suspect]
     Indication: MENINGITIS VIRAL
     Dosage: 750MG THREE TIMES PER DAY
     Route: 042
     Dates: start: 20040721, end: 20040802
  2. CEFTRIAXONE [Suspect]
     Indication: PNEUMONIA ASPIRATION
     Dosage: 2G PER DAY
     Route: 040
     Dates: start: 20040720, end: 20040730
  3. ZOTON [Suspect]
     Dosage: 30MG PER DAY
     Route: 048
     Dates: start: 20040728, end: 20040802
  4. METRONIDAZOLE [Concomitant]
     Indication: PNEUMONIA ASPIRATION
     Dosage: 500MG THREE TIMES PER DAY
     Route: 065
     Dates: start: 20040720, end: 20040730
  5. SOLVAZINC [Concomitant]
     Indication: MINERAL DEFICIENCY
     Dosage: 1UNIT PER DAY
     Route: 065
     Dates: start: 20040722
  6. PROTIUM [Concomitant]
     Dosage: 40MG PER DAY
     Route: 065
     Dates: start: 20040721, end: 20040727
  7. PROPOFOL [Concomitant]
     Indication: SEDATION
     Route: 065
     Dates: start: 20040720, end: 20040729
  8. ALFENTANIL [Concomitant]
     Indication: SEDATION
     Route: 065
     Dates: start: 20040720, end: 20040804
  9. DOBUTAMINE [Concomitant]
     Route: 065
     Dates: start: 20040720, end: 20040727
  10. NORADRENALINE [Concomitant]
     Indication: VASOCONSTRICTION
     Route: 065
     Dates: start: 20040720, end: 20040728
  11. DDAVP [Concomitant]
     Dosage: 2MCG PER DAY
     Route: 040
     Dates: start: 20040722, end: 20040726
  12. ACETAMINOPHEN [Concomitant]
     Indication: PAIN
     Dosage: 1G FOUR TIMES PER DAY
     Route: 065
     Dates: start: 20040720, end: 20040802
  13. SELENIUM TRACE METAL ADDITIVE [Concomitant]
     Indication: MINERAL DEFICIENCY
     Dosage: 1UNIT PER DAY
     Route: 065
     Dates: start: 20040722

REACTIONS (1)
  - HEPATIC FAILURE [None]
